FAERS Safety Report 21965708 (Version 3)
Quarter: 2023Q2

REPORT INFORMATION
  Report Type: Report from Study
  Country: US (occurrence: US)
  Receive Date: 20230208
  Receipt Date: 20230522
  Transmission Date: 20230721
  Serious: Yes (Hospitalization, Other)
  Sender: FDA-Public Use
  Company Number: US-ABBVIE-4299324

PATIENT
  Age: 82 Year
  Sex: Male
  Weight: 85 kg

DRUGS (20)
  1. IMBRUVICA [Suspect]
     Active Substance: IBRUTINIB
     Indication: Chronic lymphocytic leukaemia
     Route: 048
     Dates: start: 20230105, end: 20230131
  2. TRAZODONE [Concomitant]
     Active Substance: TRAZODONE HYDROCHLORIDE
     Indication: Product used for unknown indication
  3. OMEGA-3 FATTY ACIDS [Concomitant]
     Active Substance: OMEGA-3 FATTY ACIDS
     Indication: Product used for unknown indication
  4. COLACE [Concomitant]
     Active Substance: DOCUSATE SODIUM
     Indication: Abnormal faeces
     Dosage: FREQUENCY TEXT: TAKE 100 MG BY MOUTH 2 TIMES DAILY
     Route: 048
  5. MIRAPEX [Concomitant]
     Active Substance: PRAMIPEXOLE DIHYDROCHLORIDE
     Indication: Parkinson^s disease
     Dosage: FREQUENCY TEXT: TAKE 1 TABLET DAILY
     Route: 048
  6. AZILECT [Concomitant]
     Active Substance: RASAGILINE MESYLATE
     Indication: Product used for unknown indication
  7. SINEMET [Concomitant]
     Active Substance: CARBIDOPA\LEVODOPA
     Indication: Product used for unknown indication
     Dosage: 50/200?FREQUENCY TEXT: TAKE 1 TABLET BY MOUTH 3 TIMES DAILY
     Route: 048
  8. OMEPRAZOLE [Concomitant]
     Active Substance: OMEPRAZOLE
     Indication: Product used for unknown indication
  9. CELEBREX [Concomitant]
     Active Substance: CELECOXIB
     Indication: Product used for unknown indication
     Dosage: FREQUENCY TEXT: TAKE 1 CAPSULE TWICE A DAY
     Route: 048
  10. LIPITOR [Concomitant]
     Active Substance: ATORVASTATIN CALCIUM
     Indication: Product used for unknown indication
     Dosage: DURATION TEXT: AT BEDTIME
     Route: 048
  11. NEURONTIN [Concomitant]
     Active Substance: GABAPENTIN
     Indication: Neuropathy peripheral
     Dosage: FREQUENCY TEXT: TAKE 1 TABLET THREE TIMES A DAY
     Route: 048
  12. SILDENAFIL CITRATE [Concomitant]
     Active Substance: SILDENAFIL CITRATE
     Indication: Cardiac disorder
  13. SENOKOT [Concomitant]
     Active Substance: SENNOSIDES
     Indication: Product used for unknown indication
     Dosage: - FREQUENCY TEXT: TAKE 8.6 MG BY MOUTH DAILY
  14. GABAPENTIN [Concomitant]
     Active Substance: GABAPENTIN
     Indication: Product used for unknown indication
  15. SILDENAFIL [Concomitant]
     Active Substance: SILDENAFIL
     Indication: Pulmonary hypertension
     Dosage: FREQUENCY TEXT: TAKE 3-5 TABLETS BY MOUTH AS NEEDED?DURATION TEXT: HASN^T USED IN A YEAR
     Route: 048
  16. PRILOSEC [Concomitant]
     Active Substance: OMEPRAZOLE MAGNESIUM
     Indication: Gastrooesophageal reflux disease
     Dosage: FREQUENCY TEXT: TAKE 1 CAPSULE DAILY
     Route: 048
  17. FLOMAX [Concomitant]
     Active Substance: TAMSULOSIN HYDROCHLORIDE
     Indication: Urinary retention
     Dosage: FREQUENCY TEXT: TAKE 1 CAPSULE (0.4 MG) BY MOUTH, DAILY
     Route: 048
  18. MIRALAX [Concomitant]
     Active Substance: POLYETHYLENE GLYCOL 3350
     Indication: Laxative supportive care
     Dosage: POWDER IN PACKET;?FREQUENCY TEXT: TAKE 17 GRAMS BY MOUTH DAILY
  19. RASAGILINE [Concomitant]
     Active Substance: RASAGILINE
     Indication: Parkinsonism
     Dosage: FREQUENCY TEXT: TAKE 1 TABLET DAILY IN THE MORNING
     Route: 048
  20. FINASTERIDE [Concomitant]
     Active Substance: FINASTERIDE
     Indication: Benign prostatic hyperplasia
     Dosage: (PROSCAR)FREQUENCY TEXT: TAKE 1 TABLET (5 MG) BY MOUTH
     Route: 048

REACTIONS (2)
  - Aortic dissection [Recovering/Resolving]
  - Arterial thrombosis [Unknown]

NARRATIVE: CASE EVENT DATE: 20230203
